FAERS Safety Report 8578740-2 (Version None)
Quarter: 2012Q3

REPORT INFORMATION
  Report Type: 
  Country: None (occurrence: None)
  Receive Date: 20120808
  Receipt Date: 20120731
  Transmission Date: 20120928
  Serious: Yes (Other)
  Sender: FDA-Public Use
  Company Number: US-BAYER-2012-078558

PATIENT
  Age: 18 Year
  Sex: Female
  Weight: 77 kg

DRUGS (8)
  1. DIPHENHYDRAMINE HYDROCHLORIDE [Concomitant]
     Dosage: 50 MG, UNK
     Route: 048
     Dates: start: 20090825
  2. FLUTICASONE PROPIONATE [Concomitant]
     Dosage: 50 MCG, BID
     Route: 045
     Dates: start: 20090727
  3. PROAIR HFA [Concomitant]
     Dosage: 90 MCG, PRN
     Dates: start: 20090727
  4. FAMCICLOVIR [Concomitant]
     Dosage: 250 MG, UNK
     Route: 048
     Dates: start: 20090727
  5. YASMIN [Suspect]
  6. FLUTICASONE PROPIONATE [Concomitant]
     Dosage: 250 MCG, BID
     Dates: start: 20090727
  7. ADACEL [Concomitant]
     Dosage: UNK
     Dates: start: 20090727
  8. ALBUTEROL [Concomitant]

REACTIONS (1)
  - DEEP VEIN THROMBOSIS [None]
